FAERS Safety Report 6244871-5 (Version None)
Quarter: 2009Q2

REPORT INFORMATION
  Report Type: 
  Country: None (occurrence: None)
  Receive Date: 20090625
  Receipt Date: 20090619
  Transmission Date: 20091009
  Serious: Yes (Hospitalization)
  Sender: FDA-Public Use
  Company Number: A0793535A

PATIENT
  Sex: Male

DRUGS (2)
  1. SERETIDE [Suspect]
     Dosage: 2PUFF TWICE PER DAY
     Route: 055
     Dates: start: 20061201, end: 20071001
  2. NASONEX [Concomitant]
     Dosage: 1PUFF PER DAY
     Dates: start: 20061201, end: 20071001

REACTIONS (2)
  - DRUG ADMINISTRATION ERROR [None]
  - PNEUMONIA [None]
